FAERS Safety Report 6541181-3 (Version None)
Quarter: 2010Q1

REPORT INFORMATION
  Report Type: 
  Country: None (occurrence: None)
  Receive Date: 20100118
  Receipt Date: 20100107
  Transmission Date: 20100710
  Serious: Yes (Death)
  Sender: FDA-Public Use
  Company Number: B0607320A

PATIENT
  Sex: Female
  Weight: 63 kg

DRUGS (2)
  1. TYKERB [Suspect]
     Indication: BREAST CANCER
     Route: 048
     Dates: start: 20090827, end: 20090925
  2. XELODA [Concomitant]
     Route: 048
     Dates: start: 20090827, end: 20090925

REACTIONS (2)
  - DISEASE PROGRESSION [None]
  - RASH [None]
